FAERS Safety Report 14927073 (Version 1)
Quarter: 2018Q2

REPORT INFORMATION
  Report Type: Spontaneous
  Country: US (occurrence: US)
  Receive Date: 20180504
  Receipt Date: 20180504
  Transmission Date: 20180711
  Serious: Yes (Life-Threatening, Hospitalization)
  Sender: FDA-Public Use
  Company Number: None

PATIENT
  Age: 63 Year
  Sex: Male
  Weight: 145.01 kg

DRUGS (2)
  1. WARFARIN [Suspect]
     Active Substance: WARFARIN
     Indication: ATRIAL FIBRILLATION
     Route: 048
     Dates: start: 20170602, end: 20180131
  2. ASPIRIN. [Suspect]
     Active Substance: ASPIRIN
     Route: 048
     Dates: start: 20170612, end: 20180131

REACTIONS (13)
  - Dyspnoea [None]
  - Gastrointestinal haemorrhage [None]
  - Coagulation factor increased [None]
  - Prothrombin time prolonged [None]
  - International normalised ratio increased [None]
  - Thrombocytopenia [None]
  - Gastric haemorrhage [None]
  - International normalised ratio abnormal [None]
  - Dizziness [None]
  - Sinus congestion [None]
  - Faeces discoloured [None]
  - Haematuria [None]
  - Contusion [None]

NARRATIVE: CASE EVENT DATE: 20180131
